FAERS Safety Report 8115148-8 (Version None)
Quarter: 2012Q1

REPORT INFORMATION
  Report Type: 
  Country: None (occurrence: None)
  Receive Date: 20120123
  Receipt Date: 20120110
  Transmission Date: 20120608
  Serious: Yes (Other)
  Sender: FDA-Public Use
  Company Number: 2009020977

PATIENT
  Sex: Female

DRUGS (6)
  1. CARIMUNE NF [Suspect]
     Indication: MYASTHENIA GRAVIS
     Dosage: (INTRAVENOUS (NOT OTHERWISE SPECIFIED)), (120 G, 120 G WEEKLY (2 WEEKS ON AND 1 WEEK OFF) INTRAVENOU
     Route: 042
     Dates: start: 20110301
  2. CARIMUNE NF [Suspect]
     Indication: AUTONOMIC NEUROPATHY
     Dosage: (INTRAVENOUS (NOT OTHERWISE SPECIFIED)), (120 G, 120 G WEEKLY (2 WEEKS ON AND 1 WEEK OFF) INTRAVENOU
     Route: 042
     Dates: start: 20110301
  3. CARIMUNE NF [Suspect]
     Indication: IMMUNODEFICIENCY
     Dosage: (INTRAVENOUS (NOT OTHERWISE SPECIFIED)), (120 G, 120 G WEEKLY (2 WEEKS ON AND 1 WEEK OFF) INTRAVENOU
     Route: 042
     Dates: start: 20110301
  4. CARIMUNE NF [Suspect]
     Indication: MYASTHENIA GRAVIS
     Dosage: (INTRAVENOUS (NOT OTHERWISE SPECIFIED)), (120 G, 120 G WEEKLY (2 WEEKS ON AND 1 WEEK OFF) INTRAVENOU
     Route: 042
     Dates: start: 20091013
  5. CARIMUNE NF [Suspect]
     Indication: AUTONOMIC NEUROPATHY
     Dosage: (INTRAVENOUS (NOT OTHERWISE SPECIFIED)), (120 G, 120 G WEEKLY (2 WEEKS ON AND 1 WEEK OFF) INTRAVENOU
     Route: 042
     Dates: start: 20091013
  6. CARIMUNE NF [Suspect]
     Indication: IMMUNODEFICIENCY
     Dosage: (INTRAVENOUS (NOT OTHERWISE SPECIFIED)), (120 G, 120 G WEEKLY (2 WEEKS ON AND 1 WEEK OFF) INTRAVENOU
     Route: 042
     Dates: start: 20091013

REACTIONS (10)
  - BLOOD IMMUNOGLOBULIN G DECREASED [None]
  - HYPERHIDROSIS [None]
  - CONDITION AGGRAVATED [None]
  - MENINGITIS ASEPTIC [None]
  - RASH [None]
  - FLUSHING [None]
  - NECK PAIN [None]
  - PYREXIA [None]
  - MIGRAINE [None]
  - NUCHAL RIGIDITY [None]
